FAERS Safety Report 18140656 (Version 1)
Quarter: 2020Q3

REPORT INFORMATION
  Report Type: Spontaneous
  Country: US (occurrence: US)
  Receive Date: 20200812
  Receipt Date: 20200812
  Transmission Date: 20201103
  Serious: No
  Sender: FDA-Public Use
  Company Number: NVSC2020US221883

PATIENT
  Sex: Male

DRUGS (3)
  1. LIPITOR [Concomitant]
     Active Substance: ATORVASTATIN CALCIUM
     Indication: THYROIDITIS
     Dosage: UNK
     Route: 065
  2. TRAVOPROST. [Suspect]
     Active Substance: TRAVOPROST
     Indication: PRODUCT USED FOR UNKNOWN INDICATION
     Dosage: UNK
     Route: 065
  3. LOVASTIN [Concomitant]
     Active Substance: LOVASTATIN
     Indication: BLOOD PRESSURE MEASUREMENT
     Dosage: UNK
     Route: 065

REACTIONS (1)
  - Abnormal sensation in eye [Unknown]
